FAERS Safety Report 11071296 (Version 2)
Quarter: 2015Q2

REPORT INFORMATION
  Report Type: Spontaneous
  Country: US (occurrence: US)
  Receive Date: 20150428
  Receipt Date: 20150506
  Transmission Date: 20150821
  Serious: No
  Sender: FDA-Public Use
  Company Number: US-GLAXOSMITHKLINE-US2015044482

PATIENT
  Age: 72 Year
  Sex: Male

DRUGS (1)
  1. ABREVA [Suspect]
     Active Substance: DOCOSANOL
     Indication: ORAL HERPES
     Dosage: UNK

REACTIONS (4)
  - Application site pain [Recovered/Resolved]
  - Application site scab [Not Recovered/Not Resolved]
  - Drug administration error [Unknown]
  - Application site exfoliation [Recovered/Resolved]
